FAERS Safety Report 13583053 (Version 2)
Quarter: 2017Q3

REPORT INFORMATION
  Report Type: Report from Study
  Country: US (occurrence: US)
  Receive Date: 20170525
  Receipt Date: 20170721
  Transmission Date: 20171127
  Serious: Yes (Hospitalization)
  Sender: FDA-Public Use
  Company Number: US-SA-2016SA190159

PATIENT
  Age: 33 Year
  Sex: Female

DRUGS (2)
  1. CERDELGA [Suspect]
     Active Substance: ELIGLUSTAT
     Indication: GAUCHER^S DISEASE TYPE I
     Dosage: DOSE: 84.0
     Route: 048
     Dates: start: 20160516
  2. CEREZYME [Suspect]
     Active Substance: IMIGLUCERASE
     Dosage: DOSE: 4800?FREQUENCY: Q2
     Route: 041
     Dates: start: 20170526

REACTIONS (12)
  - Condition aggravated [Unknown]
  - Fatigue [Not Recovered/Not Resolved]
  - Insomnia [Not Recovered/Not Resolved]
  - Mood altered [Unknown]
  - Therapeutic response decreased [Unknown]
  - Speech disorder [Unknown]
  - Feeling abnormal [Unknown]
  - Depressed mood [Unknown]
  - Dyspnoea [Unknown]
  - Tremor [Unknown]
  - Weight increased [Unknown]
  - Epistaxis [Unknown]

NARRATIVE: CASE EVENT DATE: 201605
